FAERS Safety Report 8294118-3 (Version None)
Quarter: 2012Q2

REPORT INFORMATION
  Report Type: 
  Country: None (occurrence: None)
  Receive Date: 20120418
  Receipt Date: 20120408
  Transmission Date: 20120825
  Serious: Yes (Other)
  Sender: FDA-Public Use
  Company Number: PHHY2012FR030743

PATIENT
  Age: 73 Year
  Sex: Male

DRUGS (4)
  1. THYMOGLOBULIN [Suspect]
     Indication: LIVER TRANSPLANT
     Dosage: UNK UKN, UNK
  2. CYCLOSPORINE [Suspect]
     Indication: LIVER TRANSPLANT
     Dosage: UNK UKN, UNK
  3. MYCOPHENOLATE MOFETIL [Suspect]
     Indication: LIVER TRANSPLANT
     Dosage: UNK UKN, UNK
  4. STEROIDS NOS [Concomitant]
     Dosage: UNK UKN, UNK

REACTIONS (5)
  - CHOLESTASIS [None]
  - THYMOMA [None]
  - BILE DUCT STENOSIS [None]
  - LIVER TRANSPLANT REJECTION [None]
  - EPSTEIN-BARR VIRUS INFECTION [None]
